FAERS Safety Report 4564543-2 (Version None)
Quarter: 2005Q1

REPORT INFORMATION
  Report Type: 
  Country: None (occurrence: None)
  Receive Date: 20050126
  Receipt Date: 20050111
  Transmission Date: 20050727
  Serious: Yes (Life-Threatening)
  Sender: FDA-Public Use
  Company Number: BRO-008286

PATIENT
  Age: 24 Year
  Sex: Female

DRUGS (2)
  1. MULTIHANCE [Suspect]
     Indication: NUCLEAR MAGNETIC RESONANCE IMAGING
     Route: 042
     Dates: start: 20041229, end: 20041229
  2. METAHADONE [Concomitant]

REACTIONS (5)
  - CARDIAC ARREST [None]
  - CONTRAST MEDIA REACTION [None]
  - FACE OEDEMA [None]
  - LARYNGEAL OEDEMA [None]
  - PAIN [None]
